FAERS Safety Report 23582025 (Version 1)
Quarter: 2024Q1

REPORT INFORMATION
  Report Type: Spontaneous
  Country: US (occurrence: US)
  Receive Date: 20240229
  Receipt Date: 20240229
  Transmission Date: 20240409
  Serious: No
  Sender: FDA-Public Use
  Company Number: US-SA-SAC20240223001220

PATIENT
  Age: 26 Year
  Sex: Female
  Weight: 96.61 kg

DRUGS (2)
  1. DUPIXENT [Suspect]
     Active Substance: DUPILUMAB
     Indication: Illness
     Dosage: 300 MG, QOW
     Route: 058
  2. LAMOTRIGINE [Concomitant]
     Active Substance: LAMOTRIGINE

REACTIONS (1)
  - Tinea versicolour [Not Recovered/Not Resolved]

NARRATIVE: CASE EVENT DATE: 20240220
